FAERS Safety Report 17432648 (Version 1)
Quarter: 2020Q1

REPORT INFORMATION
  Report Type: Spontaneous
  Country: CN (occurrence: CN)
  Receive Date: 20200218
  Receipt Date: 20200218
  Transmission Date: 20200409
  Serious: Yes (Other)
  Sender: FDA-Public Use
  Company Number: CN-BAXTER-2020BAX003324

PATIENT
  Age: 45 Year
  Sex: Female
  Weight: 52.5 kg

DRUGS (15)
  1. ENDOXAN [Suspect]
     Active Substance: CYCLOPHOSPHAMIDE
     Dosage: DOSE RE-INTRODUCED, ENDOXAN + NS
     Route: 041
  2. 0.9% SODIUM CHLORIDE INJECTION [Suspect]
     Active Substance: SODIUM CHLORIDE
     Dosage: DOSE RE-INTRODUCED, PHARMORUBICIN + NS
     Route: 041
  3. SODIUM CHLORIDE. [Concomitant]
     Active Substance: SODIUM CHLORIDE
     Dosage: LANSHUO 30 MG + NS 100 ML
     Route: 065
     Dates: start: 20200105, end: 20200105
  4. PHARMORUBICIN [Suspect]
     Active Substance: EPIRUBICIN
     Indication: BREAST CANCER FEMALE
     Dosage: 1ST TO 3RD CHEMOTHERAPY, PHARMORUBICIN + NS
     Route: 041
  5. PHARMORUBICIN [Suspect]
     Active Substance: EPIRUBICIN
     Dosage: FOURTH CHEMOTHERAPY, PHARMORUBICIN + NS, MORE THAN 1.5 HOURS
     Route: 041
     Dates: start: 20200105, end: 20200105
  6. SODIUM CHLORIDE. [Concomitant]
     Active Substance: SODIUM CHLORIDE
     Indication: MEDICATION DILUTION
     Dosage: ONDANSETRON 8 MG + NS
     Route: 040
     Dates: start: 20200105, end: 20200105
  7. 0.9% SODIUM CHLORIDE INJECTION [Suspect]
     Active Substance: SODIUM CHLORIDE
     Dosage: FOURTH CHEMOTHERAPY, ENDOXAN 870 MG + NS, MORE THAN 1.5 HOURS
     Route: 041
     Dates: start: 20200105, end: 20200105
  8. 0.9% SODIUM CHLORIDE INJECTION [Suspect]
     Active Substance: SODIUM CHLORIDE
     Dosage: FOURTH CHEMOTHERAPY, PHARMORUBICIN 130 MG + NS, MORE THAN 1.5 HOURS
     Route: 041
     Dates: start: 20200105, end: 20200105
  9. ENDOXAN [Suspect]
     Active Substance: CYCLOPHOSPHAMIDE
     Dosage: FOURTH CHEMOTHERAPY, ENDOXAN + NS, MORE THAN 1.5 HOURS
     Route: 041
     Dates: start: 20200105, end: 20200105
  10. 0.9% SODIUM CHLORIDE INJECTION [Suspect]
     Active Substance: SODIUM CHLORIDE
     Indication: MEDICATION DILUTION
     Dosage: 1ST TO 3RD CHEMOTHERAPY, ENDOXAN + NS
     Route: 041
  11. ENDOXAN [Suspect]
     Active Substance: CYCLOPHOSPHAMIDE
     Indication: BREAST CANCER FEMALE
     Dosage: 1ST TO 3RD CHEMOTHERAPY, ENDOXAN + NS
     Route: 041
  12. 0.9% SODIUM CHLORIDE INJECTION [Suspect]
     Active Substance: SODIUM CHLORIDE
     Dosage: DOSE RE-INTRODUCED, ENDOXAN + NS
     Route: 041
  13. 0.9% SODIUM CHLORIDE INJECTION [Suspect]
     Active Substance: SODIUM CHLORIDE
     Dosage: 1ST TO 3RD CHEMOTHERAPY, PHARMORUBICIN + NS
     Route: 041
  14. PHARMORUBICIN [Suspect]
     Active Substance: EPIRUBICIN
     Dosage: DOSE RE-INTRODUCED, PHARMORUBICIN + NS
     Route: 041
  15. ONDANSETRON [Concomitant]
     Active Substance: ONDANSETRON
     Indication: PROPHYLAXIS
     Dosage: ONDANSETRON 8 MG + NS OF 10 ML
     Route: 040
     Dates: start: 20200105, end: 20200105

REACTIONS (2)
  - Bone marrow failure [Recovering/Resolving]
  - Nausea [Recovering/Resolving]

NARRATIVE: CASE EVENT DATE: 20200106
